FAERS Safety Report 7051637-5 (Version None)
Quarter: 2010Q4

REPORT INFORMATION
  Report Type: 
  Country: None (occurrence: None)
  Receive Date: 20101019
  Receipt Date: 20101007
  Transmission Date: 20110411
  Serious: Yes (Other)
  Sender: FDA-Public Use
  Company Number: US-ROCHE-732335

PATIENT
  Sex: Female

DRUGS (1)
  1. HERCEPTIN [Suspect]
     Indication: BREAST CANCER
     Route: 042
     Dates: start: 20100927

REACTIONS (6)
  - CATHETER SITE ERYTHEMA [None]
  - LOCAL SWELLING [None]
  - NEUTROPENIA [None]
  - PRODUCT QUALITY ISSUE [None]
  - SEPSIS [None]
  - STAPHYLOCOCCAL INFECTION [None]
